FAERS Safety Report 8738166 (Version 4)
Quarter: 2012Q4

REPORT INFORMATION
  Report Type: 
  Country: US (occurrence: US)
  Receive Date: 20120823
  Receipt Date: 20121009
  Transmission Date: 20130627
  Serious: Yes (Hospitalization, Other)
  Sender: FDA-Public Use
  Company Number: US-009507513-2012SP022373

PATIENT

DRUGS (1)
  1. NUVARING [Suspect]
     Indication: CONTRACEPTION
     Dosage: Nuvaring
     Route: 067
     Dates: start: 200806, end: 200905

REACTIONS (26)
  - Tongue ulceration [Unknown]
  - Antinuclear antibody positive [Unknown]
  - Pulmonary embolism [Recovered/Resolved]
  - Thrombosis [Unknown]
  - Deep vein thrombosis [Unknown]
  - Chest pain [Unknown]
  - Ventricular hypertrophy [Unknown]
  - Pulmonary artery dilatation [Unknown]
  - Mitral valve incompetence [Unknown]
  - Tricuspid valve incompetence [Unknown]
  - Pulmonary valve incompetence [Unknown]
  - Pain in extremity [Unknown]
  - Thyroglossal cyst [Unknown]
  - Surgery [Unknown]
  - Sinus bradycardia [Unknown]
  - Anaemia [Unknown]
  - Sinusitis [Unknown]
  - Sinusitis [Unknown]
  - Sinusitis [Unknown]
  - Ethmoid sinus surgery [Unknown]
  - Sphenoid sinus operation [Unknown]
  - Sinus antrostomy [Unknown]
  - Nasal septal operation [Unknown]
  - Electrocauterisation [Unknown]
  - Nasal septum deviation [Unknown]
  - Nasal turbinate hypertrophy [Unknown]
